FAERS Safety Report 8619345-4 (Version None)
Quarter: 2012Q3

REPORT INFORMATION
  Report Type: 
  Country: None (occurrence: None)
  Receive Date: 20120702
  Receipt Date: 20120702
  Transmission Date: 20120928
  Serious: Yes (Hospitalization)
  Sender: FDA-Public Use
  Company Number: None

PATIENT
  Sex: Male

DRUGS (2)
  1. ALLOPURINOL [Suspect]
     Indication: MYELODYSPLASTIC SYNDROME
     Dosage: 100 MG EVERY DAY PO
     Route: 048
     Dates: start: 20120114, end: 20120619
  2. ALLOPURINOL [Suspect]
     Indication: THROMBOCYTOPENIA
     Dosage: 100 MG EVERY DAY PO
     Route: 048
     Dates: start: 20120114, end: 20120619

REACTIONS (5)
  - HAEMATOCRIT DECREASED [None]
  - MACROCYTOSIS [None]
  - POLYCHROMASIA [None]
  - BLOOD GLUCOSE INCREASED [None]
  - HAEMOGLOBIN DECREASED [None]
